FAERS Safety Report 19515330 (Version 4)
Quarter: 2021Q3

REPORT INFORMATION
  Report Type: Report from Study
  Country: CA (occurrence: CA)
  Receive Date: 20210710
  Receipt Date: 20210924
  Transmission Date: 20211014
  Serious: Yes (Other)
  Sender: FDA-Public Use
  Company Number: CA-TAKEDA-2021TUS042762

PATIENT
  Age: 33 Year
  Sex: Female

DRUGS (5)
  1. SYNTHROID [Concomitant]
     Active Substance: LEVOTHYROXINE SODIUM
     Indication: PRODUCT USED FOR UNKNOWN INDICATION
     Dosage: 0.25 MILLIGRAM, 1?TAB M?F THEN 2 TABLETS
     Route: 065
  2. FRAGMIN [Concomitant]
     Active Substance: DALTEPARIN SODIUM
     Indication: PRODUCT USED FOR UNKNOWN INDICATION
     Dosage: 5000 DOSAGE FORM, QD
     Route: 065
  3. CUVITRU [Suspect]
     Active Substance: HUMAN IMMUNOGLOBULIN G
     Indication: ABORTION SPONTANEOUS
     Dosage: 13 GRAM, 1/WEEK
     Route: 065
     Dates: start: 20210630
  4. CUVITRU [Suspect]
     Active Substance: HUMAN IMMUNOGLOBULIN G
     Indication: FAILED IN VITRO FERTILISATION
     Dosage: 13 GRAM, 1/WEEK
     Route: 065
     Dates: start: 20210630, end: 20210915
  5. METFORMIN [Concomitant]
     Active Substance: METFORMIN HYDROCHLORIDE
     Indication: INFERTILITY
     Dosage: 1000 MILLIGRAM, QD
     Route: 065

REACTIONS (6)
  - Infusion site mass [Not Recovered/Not Resolved]
  - Abortion spontaneous [Unknown]
  - Off label use [Unknown]
  - Infusion site bruising [Unknown]
  - Pregnancy [Unknown]
  - Poor venous access [Unknown]

NARRATIVE: CASE EVENT DATE: 2021
